FAERS Safety Report 5678809-6 (Version None)
Quarter: 2008Q1

REPORT INFORMATION
  Report Type: 
  Country: None (occurrence: None)
  Receive Date: 20080324
  Receipt Date: 20080324
  Transmission Date: 20080703
  Serious: No
  Sender: FDA-Public Use
  Company Number: None

PATIENT
  Sex: Female
  Weight: 53.0709 kg

DRUGS (3)
  1. NEUPRO [Suspect]
     Indication: PARKINSON'S DISEASE
     Dosage: 1 A DAY
     Dates: start: 20080107, end: 20080217
  2. ARTANE GENERIC [Concomitant]
  3. CARBIDOPA AND LEVODOPA [Concomitant]

REACTIONS (2)
  - EMOTIONAL DISTRESS [None]
  - TREMOR [None]
